FAERS Safety Report 4707303-1 (Version None)
Quarter: 2005Q3

REPORT INFORMATION
  Report Type: 
  Country: None (occurrence: None)
  Receive Date: 20050701
  Receipt Date: 20050406
  Transmission Date: 20060218
  Serious: Yes (Hospitalization)
  Sender: FDA-Public Use
  Company Number: PAR_0097_2005

PATIENT
  Age: 70 Year
  Sex: Male
  Weight: 55 kg

DRUGS (5)
  1. CAPOTEN [Suspect]
     Indication: HYPERTENSION
     Dosage: 12.5 MG Q12HR PO
     Route: 048
     Dates: start: 20050404, end: 20050505
  2. CAPOTEN [Suspect]
     Indication: HYPERTENSION
     Dosage: 25 MG Q8HR PO
     Route: 048
     Dates: start: 20050505
  3. AMOXICILLIN [Concomitant]
  4. DECONGEX [Concomitant]
  5. ASPIRIN [Concomitant]

REACTIONS (5)
  - BLISTER [None]
  - ERYSIPELAS [None]
  - ERYTHEMA [None]
  - FEELING HOT [None]
  - SWELLING [None]
